FAERS Safety Report 16502448 (Version 1)
Quarter: 2019Q3

REPORT INFORMATION
  Report Type: Spontaneous
  Country: ES (occurrence: ES)
  Receive Date: 20190701
  Receipt Date: 20190701
  Transmission Date: 20191004
  Serious: Yes (Hospitalization, Other)
  Sender: FDA-Public Use
  Company Number: ES-ACTELION-A-CH2019-192058

PATIENT

DRUGS (9)
  1. PENTOXIFYLLINE. [Concomitant]
     Active Substance: PENTOXIFYLLINE
     Indication: THROMBOANGIITIS OBLITERANS
  2. ALPROSTADIL. [Concomitant]
     Active Substance: ALPROSTADIL
     Indication: THROMBOANGIITIS OBLITERANS
  3. ACETYLSALICYLIC ACID [Concomitant]
     Active Substance: ASPIRIN
     Indication: THROMBOANGIITIS OBLITERANS
  4. BOSENTAN. [Suspect]
     Active Substance: BOSENTAN
     Indication: THROMBOANGIITIS OBLITERANS
     Dosage: 62.5 MG, BID
     Route: 048
  5. BOSENTAN. [Suspect]
     Active Substance: BOSENTAN
     Dosage: 125 MG, BID
     Route: 048
  6. TRIFLUSAL [Concomitant]
     Active Substance: TRIFLUSAL
     Indication: THROMBOANGIITIS OBLITERANS
  7. NIFEDIPINE. [Concomitant]
     Active Substance: NIFEDIPINE
     Indication: THROMBOANGIITIS OBLITERANS
  8. HEPARIN [Concomitant]
     Active Substance: HEPARIN SODIUM
     Indication: THROMBOANGIITIS OBLITERANS
  9. CLOPIDOGREL [Concomitant]
     Active Substance: CLOPIDOGREL BISULFATE
     Indication: THROMBOANGIITIS OBLITERANS

REACTIONS (5)
  - Drug effective for unapproved indication [Unknown]
  - Amputation [Unknown]
  - Oedema peripheral [Unknown]
  - Transaminases increased [Unknown]
  - Skin necrosis [Recovered/Resolved]
